FAERS Safety Report 15138746 (Version 1)
Quarter: 2018Q3

REPORT INFORMATION
  Report Type: Spontaneous
  Country: AU (occurrence: AU)
  Receive Date: 20180713
  Receipt Date: 20180713
  Transmission Date: 20181010
  Serious: Yes (Other)
  Sender: FDA-Public Use
  Company Number: AU-TEVA-2018-AU-924104

PATIENT
  Age: 58 Year
  Sex: Male

DRUGS (5)
  1. CLOZARIL [Suspect]
     Active Substance: CLOZAPINE
     Route: 065
  2. SODIUM VALPROATE [Suspect]
     Active Substance: VALPROATE SODIUM
     Route: 065
  3. OLANZAPINE. [Suspect]
     Active Substance: OLANZAPINE
     Route: 065
  4. HALOPERIDOL. [Suspect]
     Active Substance: HALOPERIDOL
     Route: 065
  5. ARIPIPRAZOLE. [Suspect]
     Active Substance: ARIPIPRAZOLE
     Route: 065

REACTIONS (13)
  - Wound infection [Unknown]
  - Diarrhoea [Unknown]
  - Psychotic disorder [Unknown]
  - White blood cell count decreased [Unknown]
  - Mental disorder [Unknown]
  - Neutropenia [Unknown]
  - Neutrophil count decreased [Unknown]
  - Aggression [Unknown]
  - Malaise [Unknown]
  - Constipation [Unknown]
  - Hallucination, auditory [Unknown]
  - Scrotal haematoma [Unknown]
  - Food poisoning [Unknown]
